FAERS Safety Report 19891360 (Version 2)
Quarter: 2022Q1

REPORT INFORMATION
  Report Type: Spontaneous
  Country: IN (occurrence: IN)
  Receive Date: 20210928
  Receipt Date: 20220207
  Transmission Date: 20220423
  Serious: Yes (Death)
  Sender: FDA-Public Use
  Company Number: IN-PFIZER INC-2018284509

PATIENT
  Age: 69 Year
  Sex: Male

DRUGS (1)
  1. CRIZOTINIB [Suspect]
     Active Substance: CRIZOTINIB
     Indication: Lung neoplasm malignant
     Dosage: 250 MG, 2X/DAY
     Route: 048
     Dates: start: 20170913, end: 20200713

REACTIONS (5)
  - Multiple organ dysfunction syndrome [Fatal]
  - Abdominal discomfort [Unknown]
  - Pruritus [Unknown]
  - Constipation [Unknown]
  - Dyspepsia [Unknown]
